FAERS Safety Report 12744384 (Version 1)
Quarter: 2016Q3

REPORT INFORMATION
  Report Type: Spontaneous
  Country: US (occurrence: US)
  Receive Date: 20160914
  Receipt Date: 20160914
  Transmission Date: 20161109
  Serious: No
  Sender: FDA-Public Use
  Company Number: US-JAZZ-2016-US-009127

PATIENT
  Sex: Male

DRUGS (42)
  1. BUPROPION HCL [Concomitant]
     Active Substance: BUPROPION HYDROCHLORIDE
  2. GABAPENTIN. [Concomitant]
     Active Substance: GABAPENTIN
  3. LISINOPRIL. [Concomitant]
     Active Substance: LISINOPRIL
  4. TRIAMCINOLONE [Concomitant]
     Active Substance: TRIAMCINOLONE
  5. UREA. [Concomitant]
     Active Substance: UREA
  6. XYREM [Suspect]
     Active Substance: SODIUM OXYBATE
     Indication: NARCOLEPSY
     Dosage: 2.25 G, BID
     Route: 048
     Dates: start: 200810, end: 200812
  7. AMLODIPINE [Suspect]
     Active Substance: AMLODIPINE BESYLATE
     Indication: PRODUCT USED FOR UNKNOWN INDICATION
  8. ATORVASTATIN [Concomitant]
     Active Substance: ATORVASTATIN
  9. HYDROQUINONE. [Concomitant]
     Active Substance: HYDROQUINONE
  10. IBUPROFEN. [Concomitant]
     Active Substance: IBUPROFEN
  11. XYREM [Suspect]
     Active Substance: SODIUM OXYBATE
     Dosage: 3.5 G, BID
     Route: 048
     Dates: start: 201204
  12. ABILIFY [Concomitant]
     Active Substance: ARIPIPRAZOLE
  13. ATENOLOL. [Concomitant]
     Active Substance: ATENOLOL
  14. BIOTENE NOS [Concomitant]
     Active Substance: CETYLPYRIDINIUM CHLORIDE OR SODIUM FLUORIDE OR SODIUM MONOFLUOROPHOSPHATE OR GLUCOSE OXIDASE\LACTOFERRIN\LACTOPEROXIDASE BOVINE\LYSOZYME
  15. CALCIPOTRIENE. [Concomitant]
     Active Substance: CALCIPOTRIENE
  16. CLOBETASOL [Concomitant]
     Active Substance: CLOBETASOL
  17. ETODOLAC. [Concomitant]
     Active Substance: ETODOLAC
  18. HIBICLENS [Concomitant]
     Active Substance: CHLORHEXIDINE GLUCONATE
  19. NAFTIN [Concomitant]
     Active Substance: NAFTIFINE HYDROCHLORIDE
  20. PROTRIPTYLINE HCL [Concomitant]
  21. TRAMADOL HCL [Concomitant]
     Active Substance: TRAMADOL HYDROCHLORIDE
  22. XYREM [Suspect]
     Active Substance: SODIUM OXYBATE
     Dosage: DOSE ADJUSTMENTS
     Route: 048
  23. ACETIC ACID. [Concomitant]
     Active Substance: ACETIC ACID
  24. ACITRETINA [Concomitant]
     Active Substance: ACITRETIN
  25. METFORMIN HCL [Concomitant]
     Active Substance: METFORMIN HYDROCHLORIDE
  26. HALOBETASOL PROPIONATE. [Concomitant]
     Active Substance: HALOBETASOL PROPIONATE
  27. OMEPRAZOLE. [Concomitant]
     Active Substance: OMEPRAZOLE
  28. TERBINAFINE HCL [Concomitant]
     Active Substance: TERBINAFINE HYDROCHLORIDE
  29. BACITRACIN ZINC. [Concomitant]
     Active Substance: BACITRACIN ZINC
  30. CETIRIZINE HCL [Concomitant]
     Active Substance: CETIRIZINE HYDROCHLORIDE
  31. DEXTROAMPHETAMINE. [Concomitant]
     Active Substance: DEXTROAMPHETAMINE
  32. DOCUSATE SOD [Concomitant]
  33. MODAFINIL. [Concomitant]
     Active Substance: MODAFINIL
  34. PSYLLIUM [Concomitant]
     Active Substance: PLANTAGO SEED
  35. HYDROCHLOROTHIAZIDE. [Concomitant]
     Active Substance: HYDROCHLOROTHIAZIDE
  36. LIDOCAINE HCL [Concomitant]
     Active Substance: LIDOCAINE HYDROCHLORIDE
  37. PROVIGIL [Concomitant]
     Active Substance: MODAFINIL
  38. SIMVASTATIN. [Concomitant]
     Active Substance: SIMVASTATIN
  39. VIAGRA [Concomitant]
     Active Substance: SILDENAFIL CITRATE
  40. ZANTAC [Concomitant]
     Active Substance: RANITIDINE HYDROCHLORIDE
  41. LORATADINE. [Concomitant]
     Active Substance: LORATADINE
  42. TETANUS TOXOID ADSORBED [Concomitant]
     Active Substance: CLOSTRIDIUM TETANI TOXOID ANTIGEN (FORMALDEHYDE INACTIVATED)

REACTIONS (1)
  - Gingival disorder [Unknown]
